FAERS Safety Report 20606068 (Version 1)
Quarter: 2022Q1

REPORT INFORMATION
  Report Type: Spontaneous
  Country: KR (occurrence: KR)
  Receive Date: 20220317
  Receipt Date: 20220317
  Transmission Date: 20220423
  Serious: Yes (Other)
  Sender: FDA-Public Use
  Company Number: KR-CELLTRION INC.-2022KR002972

PATIENT

DRUGS (2)
  1. INFLIXIMAB [Suspect]
     Active Substance: INFLIXIMAB
     Indication: Crohn^s disease
     Dosage: IFX INTERVAL WAS SHORTENED FROM EVERY 8 WEEKAS TO EVEY 4 WEEKS
  2. INH [Suspect]
     Active Substance: ISONIAZID
     Indication: Latent tuberculosis

REACTIONS (4)
  - Disseminated tuberculosis [Recovered/Resolved]
  - Bone tuberculosis [Recovered/Resolved]
  - Crohn^s disease [Unknown]
  - Loss of therapeutic response [Unknown]
